FAERS Safety Report 9685251 (Version 29)
Quarter: 2015Q1

REPORT INFORMATION
  Report Type: Report from Study
  Country: CA (occurrence: CA)
  Receive Date: 20131113
  Receipt Date: 20150203
  Transmission Date: 20150721
  Serious: Yes (Death, Hospitalization, Other)
  Sender: FDA-Public Use
  Company Number: CA-ROCHE-1276715

PATIENT
  Age: 55 Year
  Sex: Female
  Weight: 78.5 kg

DRUGS (7)
  1. VALPROIC ACID. [Concomitant]
     Active Substance: VALPROIC ACID
  2. AVASTIN [Suspect]
     Active Substance: BEVACIZUMAB
     Route: 042
     Dates: start: 20140821, end: 20141222
  3. AVASTIN [Suspect]
     Active Substance: BEVACIZUMAB
     Indication: GLIOBLASTOMA
     Route: 042
     Dates: start: 20130905
  4. VITAMIN C [Concomitant]
     Active Substance: ASCORBIC ACID
  5. AVASTIN [Suspect]
     Active Substance: BEVACIZUMAB
     Route: 042
     Dates: start: 20140703
  6. RABEPRAZOLE [Concomitant]
     Active Substance: RABEPRAZOLE
  7. AVASTIN [Suspect]
     Active Substance: BEVACIZUMAB
     Route: 042
     Dates: start: 20140306

REACTIONS (29)
  - Abasia [Unknown]
  - Arthralgia [Unknown]
  - Blood pressure abnormal [Unknown]
  - Infusion related reaction [Unknown]
  - Mobility decreased [Not Recovered/Not Resolved]
  - Diarrhoea haemorrhagic [Unknown]
  - Pain in extremity [Unknown]
  - Fall [Unknown]
  - Contusion [Not Recovered/Not Resolved]
  - Constipation [Not Recovered/Not Resolved]
  - Neutropenia [Recovered/Resolved]
  - Balance disorder [Unknown]
  - Full blood count decreased [Not Recovered/Not Resolved]
  - Fatigue [Not Recovered/Not Resolved]
  - Headache [Not Recovered/Not Resolved]
  - Red blood cell count decreased [Unknown]
  - Pelvic fracture [Unknown]
  - Cough [Recovered/Resolved]
  - Rhinorrhoea [Recovered/Resolved]
  - Irritable bowel syndrome [Not Recovered/Not Resolved]
  - Hypertension [Unknown]
  - Platelet count decreased [Not Recovered/Not Resolved]
  - Oropharyngeal pain [Unknown]
  - Malignant neoplasm progression [Fatal]
  - Pneumonia [Unknown]
  - Neoplasm [Not Recovered/Not Resolved]
  - Haemoglobin decreased [Not Recovered/Not Resolved]
  - Dyspnoea [Not Recovered/Not Resolved]
  - Red cell distribution width increased [Unknown]

NARRATIVE: CASE EVENT DATE: 20130918
